FAERS Safety Report 8946727 (Version 1)
Quarter: 2012Q4

REPORT INFORMATION
  Report Type: 
  Country: US (occurrence: US)
  Receive Date: 20121204
  Receipt Date: 20121204
  Transmission Date: 20130627
  Serious: No
  Sender: FDA-Public Use
  Company Number: US-AMGEN-USASP2012075789

PATIENT
  Age: 59 Year
  Sex: Female

DRUGS (1)
  1. ENBREL [Suspect]
     Indication: PSORIASIS
     Dosage: 50 mg, biweekly
     Dates: start: 20121107, end: 20121117

REACTIONS (7)
  - Oedema mouth [Recovered/Resolved]
  - Swollen tongue [Recovered/Resolved]
  - Dry mouth [Recovered/Resolved]
  - Pain [Recovered/Resolved]
  - Dyspepsia [Recovered/Resolved]
  - Paraesthesia mucosal [Recovered/Resolved]
  - Lymphadenopathy [Recovered/Resolved]
